FAERS Safety Report 20570173 (Version 8)
Quarter: 2022Q2

REPORT INFORMATION
  Report Type: Report from Study
  Country: CH (occurrence: CH)
  Receive Date: 20220309
  Receipt Date: 20220419
  Transmission Date: 20220721
  Serious: Yes (Hospitalization)
  Sender: FDA-Public Use
  Company Number: CH-ABBVIE-22K-151-4305343-00

PATIENT
  Age: 57 Year
  Sex: Male
  Weight: 75 kg

DRUGS (11)
  1. CARBIDOPA\LEVODOPA [Suspect]
     Active Substance: CARBIDOPA\LEVODOPA
     Indication: Parkinson^s disease
     Dosage: MD: 7 ML, CRD: 3.2 ML/H, CRN: 2 ML/H, ED: 2.5 ML 24H THERAPY
     Route: 050
     Dates: start: 20211014, end: 20211102
  2. CARBIDOPA\LEVODOPA [Suspect]
     Active Substance: CARBIDOPA\LEVODOPA
     Dosage: MD: 7 ML, CRD: 3.2 ML/H, ED: 2.5 ML?16H THERAPY
     Route: 050
     Dates: start: 20211102, end: 20211203
  3. CARBIDOPA\LEVODOPA [Suspect]
     Active Substance: CARBIDOPA\LEVODOPA
     Dosage: MD: 7 ML, CRD: 3.3 ML/H, ED: 3 ML?16H THERAPY
     Route: 050
     Dates: start: 20211203, end: 20211203
  4. CARBIDOPA\LEVODOPA [Suspect]
     Active Substance: CARBIDOPA\LEVODOPA
     Dosage: MD: 7 ML, CRD: 3.3 ML/H, ED: 3 ML?16H THERAPY
     Route: 050
     Dates: start: 20211203, end: 20220124
  5. CARBIDOPA\LEVODOPA [Suspect]
     Active Substance: CARBIDOPA\LEVODOPA
     Dosage: MD: 7 ML, CRD: 3.3 ML/H, ED: 3 ML 16H THERAPY
     Route: 050
     Dates: start: 20220124, end: 20220217
  6. CARBIDOPA\LEVODOPA [Suspect]
     Active Substance: CARBIDOPA\LEVODOPA
     Dosage: MD: 7 ML, CRD: 3.3 ML/H, ED: 3 ML 16H THERAPY
     Route: 050
     Dates: start: 20220217, end: 20220306
  7. CARBIDOPA\LEVODOPA [Suspect]
     Active Substance: CARBIDOPA\LEVODOPA
     Dosage: MD: 7 ML, CRD: 3.3 ML/H, ED: 3 ML?16H THERAPY
     Route: 050
     Dates: start: 20220306, end: 20220315
  8. CARBIDOPA\LEVODOPA [Suspect]
     Active Substance: CARBIDOPA\LEVODOPA
     Dosage: 16H THERAPY
     Route: 050
     Dates: start: 20220315
  9. RIVOTRIL [Concomitant]
     Active Substance: CLONAZEPAM
     Indication: Product used for unknown indication
     Dosage: FOR THE NIGHTS
  10. TRAZODONE HYDROCHLORIDE [Concomitant]
     Active Substance: TRAZODONE HYDROCHLORIDE
     Indication: Product used for unknown indication
     Dosage: FOR THE NIGHTS
  11. SINEMET [Concomitant]
     Active Substance: CARBIDOPA\LEVODOPA
     Indication: Product used for unknown indication
     Dosage: 25/100 MG?AS A RESERVE FOR THE NIGHTS

REACTIONS (9)
  - General physical health deterioration [Recovered/Resolved]
  - Device dislocation [Recovered/Resolved]
  - Device expulsion [Recovered/Resolved]
  - Off label use [Recovered/Resolved]
  - Device connection issue [Recovered/Resolved]
  - Medical device site swelling [Unknown]
  - Product size issue [Recovered/Resolved]
  - Device issue [Recovered/Resolved]
  - Device connection issue [Recovered/Resolved]

NARRATIVE: CASE EVENT DATE: 20220301
